FAERS Safety Report 18541757 (Version 2)
Quarter: 2020Q4

REPORT INFORMATION
  Report Type: Report from Study
  Country: US (occurrence: US)
  Receive Date: 20201124
  Receipt Date: 20201210
  Transmission Date: 20210114
  Serious: Yes (Life-Threatening, Hospitalization, Other)
  Sender: FDA-Public Use
  Company Number: NVSC2020US306289

PATIENT
  Age: 61 Year
  Sex: Male
  Weight: 89.98 kg

DRUGS (3)
  1. KYMRIAH [Suspect]
     Active Substance: TISAGENLECLEUCEL
     Indication: DIFFUSE LARGE B-CELL LYMPHOMA
     Dosage: UNK
     Route: 065
     Dates: start: 20201026, end: 20201026
  2. LEVAQUIN [Concomitant]
     Active Substance: LEVOFLOXACIN
     Indication: PROPHYLAXIS
     Dosage: UNK
     Route: 065
     Dates: start: 20201110
  3. LEVOFLOXACIN. [Concomitant]
     Active Substance: LEVOFLOXACIN
     Indication: PROPHYLAXIS
     Dosage: 500 MG, QD
     Route: 048
     Dates: start: 20201026, end: 20201105

REACTIONS (20)
  - Colitis [Recovered/Resolved]
  - Atrial fibrillation [Unknown]
  - Diffuse large B-cell lymphoma [Unknown]
  - Aortic valve calcification [Unknown]
  - Malignant neoplasm progression [Unknown]
  - Abdominal lymphadenopathy [Unknown]
  - Left ventricular hypertrophy [Unknown]
  - Abdominal pain [Unknown]
  - Diarrhoea [Recovered/Resolved]
  - Vomiting [Unknown]
  - Pancreatitis [Not Recovered/Not Resolved]
  - Aortic valve stenosis [Unknown]
  - Small intestinal obstruction [Recovered/Resolved]
  - Pyrexia [Unknown]
  - Aortic valve incompetence [Unknown]
  - Chills [Recovered/Resolved]
  - Mitral valve incompetence [Unknown]
  - Bradycardia [Unknown]
  - Tricuspid valve incompetence [Unknown]
  - Supraventricular tachycardia [Unknown]

NARRATIVE: CASE EVENT DATE: 20201107
